FAERS Safety Report 11202281 (Version 1)
Quarter: 2015Q2

REPORT INFORMATION
  Report Type: Spontaneous
  Country: US (occurrence: None)
  Receive Date: 20150618
  Receipt Date: 20150618
  Transmission Date: 20150821
  Serious: Yes (Hospitalization)
  Sender: FDA-Public Use
  Company Number: None

PATIENT
  Age: 64 Year
  Sex: Male
  Weight: 72.9 kg

DRUGS (1)
  1. LISINOPRIL. [Suspect]
     Active Substance: LISINOPRIL
     Route: 048
     Dates: start: 20150313, end: 20150423

REACTIONS (4)
  - Hyperkalaemia [None]
  - Bradycardia [None]
  - Hypotension [None]
  - Toxicity to various agents [None]

NARRATIVE: CASE EVENT DATE: 20150323
